FAERS Safety Report 15715376 (Version 1)
Quarter: 2018Q4

REPORT INFORMATION
  Report Type: Report from Study
  Country: US (occurrence: US)
  Receive Date: 20181212
  Receipt Date: 20181212
  Transmission Date: 20190205
  Serious: Yes (Other)
  Sender: FDA-Public Use
  Company Number: US-BIOGEN-2018BI00652270

PATIENT
  Age: 57 Year
  Sex: Female

DRUGS (3)
  1. TECFIDERA [Suspect]
     Active Substance: DIMETHYL FUMARATE
     Indication: MULTIPLE SCLEROSIS
     Route: 065
     Dates: start: 20181025
  2. XANAX [Suspect]
     Active Substance: ALPRAZOLAM
     Indication: ANXIETY
     Dosage: HALF TABLET
     Route: 065
  3. TECFIDERA [Suspect]
     Active Substance: DIMETHYL FUMARATE
     Dosage: MAINTENANCE DOSE
     Route: 065
     Dates: start: 20181026

REACTIONS (13)
  - Myocardial infarction [Unknown]
  - Hypersensitivity [Recovered/Resolved]
  - Eating disorder [Not Recovered/Not Resolved]
  - Pharyngeal oedema [Recovered/Resolved]
  - Headache [Not Recovered/Not Resolved]
  - Vomiting [Unknown]
  - Poor quality sleep [Not Recovered/Not Resolved]
  - Weight decreased [Not Recovered/Not Resolved]
  - Dehydration [Unknown]
  - Somnolence [Unknown]
  - Cerebrovascular accident [Unknown]
  - Anxiety [Not Recovered/Not Resolved]
  - Blood pressure increased [Recovered/Resolved]

NARRATIVE: CASE EVENT DATE: 20181026
